FAERS Safety Report 7014035-6 (Version None)
Quarter: 2010Q3

REPORT INFORMATION
  Report Type: 
  Country: None (occurrence: None)
  Receive Date: 20100927
  Receipt Date: 20100922
  Transmission Date: 20110219
  Serious: Yes (Hospitalization)
  Sender: FDA-Public Use
  Company Number: US-BIOGENIDEC-2010BI032503

PATIENT
  Age: 43 Year
  Sex: Female
  Weight: 59 kg

DRUGS (9)
  1. TYSABRI [Suspect]
     Indication: MULTIPLE SCLEROSIS
     Route: 042
     Dates: start: 20090903
  2. GABAPENTIN [Concomitant]
     Route: 048
     Dates: start: 20100601
  3. CARVEDILOL [Concomitant]
     Route: 048
  4. CHANTIX [Concomitant]
     Route: 048
     Dates: end: 20100623
  5. VITAMIN D [Concomitant]
     Route: 048
  6. VITAMIN B-12 [Concomitant]
     Dosage: DOSE UNIT:500
     Route: 048
     Dates: start: 19990801
  7. BACLOFEN [Concomitant]
     Route: 048
     Dates: start: 20100801
  8. PRISTIQ [Concomitant]
     Route: 048
  9. AMBIEN [Concomitant]
     Route: 048
     Dates: start: 20100301

REACTIONS (3)
  - ACUTE MYOCARDIAL INFARCTION [None]
  - CARDIOGENIC SHOCK [None]
  - ISCHAEMIC CARDIOMYOPATHY [None]
